FAERS Safety Report 8031142-X (Version None)
Quarter: 2012Q1

REPORT INFORMATION
  Report Type: 
  Country: None (occurrence: None)
  Receive Date: 20120109
  Receipt Date: 20111228
  Transmission Date: 20120608
  Serious: Yes (Hospitalization, Other)
  Sender: FDA-Public Use
  Company Number: US-ACTELION-A-US2011-50411

PATIENT

DRUGS (5)
  1. TASIGNA [Suspect]
  2. CALCIUM CHANNEL BLOCKERS [Concomitant]
  3. TRACLEER [Suspect]
     Indication: PULMONARY ARTERIAL HYPERTENSION
     Dosage: UNK
     Route: 048
     Dates: start: 20090629
  4. REVATIO [Concomitant]
  5. COUMADIN [Concomitant]

REACTIONS (8)
  - LUNG NEOPLASM [None]
  - DEPRESSION [None]
  - COUGH [None]
  - OXYGEN CONSUMPTION [None]
  - NEOPLASM MALIGNANT [None]
  - SPEECH DISORDER [None]
  - TREMOR [None]
  - MUSCULOSKELETAL CHEST PAIN [None]
